FAERS Safety Report 12470828 (Version 1)
Quarter: 2016Q2

REPORT INFORMATION
  Report Type: Spontaneous
  Country: US (occurrence: None)
  Receive Date: 20160615
  Receipt Date: 20160615
  Transmission Date: 20160815
  Serious: Yes (Other)
  Sender: FDA-Public Use
  Company Number: None

PATIENT
  Age: 33 Year
  Sex: Female
  Weight: 147.87 kg

DRUGS (7)
  1. ZECUITY [Suspect]
     Active Substance: SUMATRIPTAN SUCCINATE
     Indication: MIGRAINE
     Dates: start: 20150101, end: 20160101
  2. NEXIUM [Concomitant]
     Active Substance: ESOMEPRAZOLE MAGNESIUM
  3. EFFEXOR [Concomitant]
     Active Substance: VENLAFAXINE HYDROCHLORIDE
  4. PHENERGAN [Concomitant]
     Active Substance: PROMETHAZINE HYDROCHLORIDE
  5. LEVOTHYROXIN [Concomitant]
     Active Substance: LEVOTHYROXINE
  6. TEGRETOL [Concomitant]
     Active Substance: CARBAMAZEPINE
  7. VALIUM [Concomitant]
     Active Substance: DIAZEPAM

REACTIONS (4)
  - Scar [None]
  - Erythema [None]
  - Burns second degree [None]
  - Blister [None]

NARRATIVE: CASE EVENT DATE: 20151001
